FAERS Safety Report 5934655-7 (Version None)
Quarter: 2008Q4

REPORT INFORMATION
  Report Type: 
  Country: None (occurrence: None)
  Receive Date: 20081029
  Receipt Date: 20081022
  Transmission Date: 20090506
  Serious: Yes (Disabling)
  Sender: FDA-Public Use
  Company Number: DE-ABBOTT-08P-062-0461908-00

PATIENT
  Sex: Male

DRUGS (7)
  1. TRENANTONE [Suspect]
     Indication: PROSTATE CANCER
     Route: 058
     Dates: start: 20080101, end: 20080401
  2. BETA-ACETYLDIGOXIN [Concomitant]
     Indication: DRUG USE FOR UNKNOWN INDICATION
     Dosage: 0.1 MG, 1/2 TABLET, LONG TERM TREATMENT
     Route: 048
  3. CLOPIDOGREL [Concomitant]
     Indication: TRANSIENT ISCHAEMIC ATTACK
     Dosage: 75 MG, 1 IN 1 D, LONG TERM TREATMENT
     Route: 048
  4. CLOPIDOGREL [Concomitant]
     Indication: PERIPHERAL ARTERIAL OCCLUSIVE DISEASE
  5. CLOPIDOGREL [Concomitant]
     Indication: EMBOLISM
  6. TROMCARDIN [Concomitant]
     Indication: DRUG USE FOR UNKNOWN INDICATION
     Dosage: LONG TERM TREATMENT
     Route: 048
  7. METOPROLOL SUCCINATE [Concomitant]
     Indication: DRUG USE FOR UNKNOWN INDICATION
     Route: 048

REACTIONS (7)
  - ACTIVITIES OF DAILY LIVING IMPAIRED [None]
  - AMNESIA [None]
  - ATRIAL FIBRILLATION [None]
  - COGNITIVE DISORDER [None]
  - GAIT DISTURBANCE [None]
  - PERIPHERAL ARTERIAL OCCLUSIVE DISEASE [None]
  - SENILE DEMENTIA [None]
